FAERS Safety Report 5979409-0 (Version None)
Quarter: 2008Q4

REPORT INFORMATION
  Report Type: 
  Country: None (occurrence: None)
  Receive Date: 20081126
  Receipt Date: 20081113
  Transmission Date: 20090506
  Serious: Yes (Death, Life-Threatening, Hospitalization)
  Sender: FDA-Public Use
  Company Number: 2008BI019734

PATIENT
  Age: 65 Year
  Sex: Female

DRUGS (3)
  1. ZEVALIN [Suspect]
     Indication: DISEASE RECURRENCE
     Dosage: IV
     Route: 042
     Dates: start: 20080516, end: 20080516
  2. ZEVALIN [Suspect]
     Indication: NON-HODGKIN'S LYMPHOMA STAGE IV
     Dosage: IV
     Route: 042
     Dates: start: 20080516, end: 20080516
  3. RITUXIMAB [Concomitant]

REACTIONS (1)
  - GASTROINTESTINAL HAEMORRHAGE [None]
